FAERS Safety Report 9230441 (Version 1)
Quarter: 2013Q1

REPORT INFORMATION
  Report Type: Spontaneous
  Country: US (occurrence: None)
  Receive Date: 20121031
  Receipt Date: 20121031
  Transmission Date: 20140127
  Serious: No
  Sender: FDA-Public Use
  Company Number: PHEH2012US016874

PATIENT
  Age: 54 Year
  Sex: Female

DRUGS (5)
  1. GILENYA (FTY) CAPSULE, 0.5 MG [Suspect]
     Indication: MULTIPLE SCLEROSIS
     Route: 048
     Dates: start: 20120823
  2. KLONOPIN (CLONAZEPAM) (TABLETS) [Concomitant]
  3. REQUIP (ROPINIROLE HYDROCHLORIDE) [Concomitant]
  4. GABAPENTIN (GABAPENTIN) [Concomitant]
  5. LASIX (FUROSEMIDE) [Concomitant]

REACTIONS (2)
  - Panic attack [None]
  - Fatigue [None]
